FAERS Safety Report 6301315-2 (Version None)
Quarter: 2009Q3

REPORT INFORMATION
  Report Type: 
  Country: None (occurrence: None)
  Receive Date: 20090807
  Receipt Date: 20090730
  Transmission Date: 20100115
  Serious: Yes (Hospitalization)
  Sender: FDA-Public Use
  Company Number: JP-ASTRAZENECA-2009SE06453

PATIENT
  Age: 21507 Day
  Sex: Male

DRUGS (4)
  1. ECARD HD [Suspect]
     Indication: HYPERTENSION
     Route: 048
     Dates: start: 20090319, end: 20090705
  2. TENORMIN [Concomitant]
     Indication: HYPERTENSION
     Route: 048
  3. ALOSITOL [Concomitant]
     Indication: HYPERURICAEMIA
     Route: 048
     Dates: start: 20080501
  4. PARIET [Concomitant]
     Indication: GASTROOESOPHAGEAL REFLUX DISEASE
     Route: 048
     Dates: start: 20090512

REACTIONS (2)
  - HEPATITIS ACUTE [None]
  - LYMPHOCYTE STIMULATION TEST POSITIVE [None]
